FAERS Safety Report 23100184 (Version 1)
Quarter: 2023Q4

REPORT INFORMATION
  Report Type: Spontaneous
  Country: US (occurrence: US)
  Receive Date: 20231024
  Receipt Date: 20231024
  Transmission Date: 20240109
  Serious: Yes (Death, Other)
  Sender: FDA-Public Use
  Company Number: US-PFIZER INC-PV202300171622

PATIENT
  Age: 52 Year
  Sex: Female

DRUGS (7)
  1. ADRIAMYCIN [Suspect]
     Active Substance: DOXORUBICIN HYDROCHLORIDE
     Dosage: UNK
  2. VELCADE [Suspect]
     Active Substance: BORTEZOMIB
     Dosage: UNK
  3. THALIDOMIDE [Suspect]
     Active Substance: THALIDOMIDE
     Dosage: UNK
  4. DEXAMETHASONE [Suspect]
     Active Substance: DEXAMETHASONE
     Dosage: UNK
  5. PLATINUM [Suspect]
     Active Substance: PLATINUM
     Dosage: UNK
  6. CYCLOPHOSPHAMIDE [Suspect]
     Active Substance: CYCLOPHOSPHAMIDE
     Dosage: UNK
  7. ETOPOSIDE [Suspect]
     Active Substance: ETOPOSIDE
     Dosage: UNK

REACTIONS (3)
  - Acute respiratory failure [Fatal]
  - Septic shock [Fatal]
  - Pneumonia [Fatal]
